FAERS Safety Report 17234136 (Version 1)
Quarter: 2020Q1

REPORT INFORMATION
  Report Type: Spontaneous
  Country: US (occurrence: US)
  Receive Date: 20200106
  Receipt Date: 20200106
  Transmission Date: 20200409
  Serious: No
  Sender: FDA-Public Use
  Company Number: US-UCBSA-2014004529

PATIENT

DRUGS (5)
  1. CIMZIA [Suspect]
     Active Substance: CERTOLIZUMAB PEGOL
     Dosage: UNK, WEEKLY (QW), WEEKLY CERTOLIZUMAB PEGOL SHOT
  2. PREDNISONE. [Concomitant]
     Active Substance: PREDNISONE
  3. PENTASA [Concomitant]
     Active Substance: MESALAMINE
     Dosage: DAILY SHOT
  4. NEXIUM [Concomitant]
     Active Substance: ESOMEPRAZOLE MAGNESIUM
     Dosage: DAILY SHOT
  5. ENTOCORT [Concomitant]
     Active Substance: BUDESONIDE
     Dosage: DAILY SHOT

REACTIONS (1)
  - Crohn^s disease [Unknown]
